FAERS Safety Report 7299130-9 (Version None)
Quarter: 2011Q1

REPORT INFORMATION
  Report Type: 
  Country: None (occurrence: None)
  Receive Date: 20110217
  Receipt Date: 20110208
  Transmission Date: 20110831
  Serious: Yes (Hospitalization)
  Sender: FDA-Public Use
  Company Number: US-ASTRAZENECA-2011SE07330

PATIENT
  Age: 21162 Day
  Sex: Male

DRUGS (3)
  1. CRESTOR [Suspect]
     Indication: HYPERCHOLESTEROLAEMIA
     Route: 048
     Dates: start: 20110201
  2. OMEPRAZOLE [Concomitant]
  3. SERTRALINE [Concomitant]

REACTIONS (2)
  - FATIGUE [None]
  - CEREBROVASCULAR ACCIDENT [None]
